FAERS Safety Report 4763274-3 (Version None)
Quarter: 2005Q3

REPORT INFORMATION
  Report Type: 
  Country: None (occurrence: None)
  Receive Date: 20050908
  Receipt Date: 20050831
  Transmission Date: 20060218
  Serious: Yes (Hospitalization)
  Sender: FDA-Public Use
  Company Number: BE-JNJFOC-20050503120

PATIENT
  Age: 28 Year
  Sex: Male

DRUGS (1)
  1. REMICADE [Suspect]
     Indication: ANKYLOSING SPONDYLITIS
     Dosage: WEEKS 0, 2, 6 AND EVERY 8 WEEKS THEREAFTER
     Route: 042

REACTIONS (2)
  - ARACHNOIDITIS [None]
  - GUILLAIN-BARRE SYNDROME [None]
